FAERS Safety Report 4934118-1 (Version None)
Quarter: 2006Q1

REPORT INFORMATION
  Report Type: 
  Country: None (occurrence: None)
  Receive Date: 20060307
  Receipt Date: 20060131
  Transmission Date: 20060701
  Serious: Yes (Death, Life-Threatening, Hospitalization)
  Sender: FDA-Public Use
  Company Number: JP-BRISTOL-MYERS SQUIBB COMPANY-13265749

PATIENT
  Age: 63 Year
  Sex: Male

DRUGS (11)
  1. TAXOL [Suspect]
     Indication: LUNG NEOPLASM MALIGNANT
     Route: 042
     Dates: start: 20050829, end: 20050829
  2. PARAPLATIN [Suspect]
     Indication: LUNG NEOPLASM MALIGNANT
     Route: 042
     Dates: start: 20050829, end: 20050829
  3. ZONISAMIDE [Suspect]
     Route: 048
     Dates: start: 20050730, end: 20050922
  4. LEVOFLOXACIN [Suspect]
     Route: 058
     Dates: start: 20050901, end: 20050905
  5. CEFCAPENE PIVOXIL HCL [Suspect]
     Route: 048
     Dates: start: 20050906, end: 20050911
  6. MAGNESIUM OXIDE [Concomitant]
     Route: 048
     Dates: start: 20050730, end: 20050914
  7. SENNOSIDE A+B [Concomitant]
     Route: 048
     Dates: start: 20050730, end: 20050914
  8. FAMOTIDINE [Concomitant]
     Route: 048
     Dates: start: 20050810, end: 20050914
  9. ZOLPIDEM TARTRATE [Concomitant]
     Route: 048
     Dates: start: 20050810, end: 20050922
  10. LENOGRASTIM [Concomitant]
     Route: 058
     Dates: start: 20050901, end: 20050904
  11. DIPHENHYDRAMINE HCL [Concomitant]
     Route: 048
     Dates: start: 20050829, end: 20050829

REACTIONS (5)
  - MALIGNANT NEOPLASM PROGRESSION [None]
  - PLATELET COUNT DECREASED [None]
  - SEPSIS [None]
  - STEVENS-JOHNSON SYNDROME [None]
  - WHITE BLOOD CELL COUNT DECREASED [None]
